FAERS Safety Report 23489600 (Version 1)
Quarter: 2024Q1

REPORT INFORMATION
  Report Type: Spontaneous
  Country: US (occurrence: None)
  Receive Date: 20240206
  Receipt Date: 20240206
  Transmission Date: 20240409
  Serious: No
  Sender: FDA-Public Use
  Company Number: US-ROCHE-3266744

PATIENT
  Sex: Female
  Weight: 74.91 kg

DRUGS (4)
  1. XOLAIR [Suspect]
     Active Substance: OMALIZUMAB
     Indication: Product used for unknown indication
     Dosage: STRENGTH: 150MG/ML
     Route: 058
     Dates: start: 202201
  2. XOLAIR [Suspect]
     Active Substance: OMALIZUMAB
  3. XOLAIR [Suspect]
     Active Substance: OMALIZUMAB
  4. LATANOPROST [Concomitant]
     Active Substance: LATANOPROST

REACTIONS (2)
  - Fatigue [Recovering/Resolving]
  - Asthma [Recovering/Resolving]

NARRATIVE: CASE EVENT DATE: 20230117
